FAERS Safety Report 7281297-X (Version None)
Quarter: 2011Q1

REPORT INFORMATION
  Report Type: 
  Country: None (occurrence: None)
  Receive Date: 20110208
  Receipt Date: 20110202
  Transmission Date: 20110831
  Serious: Yes (Death, Hospitalization)
  Sender: FDA-Public Use
  Company Number: US-ASTRAZENECA-2010SE39049

PATIENT
  Age: 78 Year
  Sex: Male

DRUGS (3)
  1. LEVAQUIN [Concomitant]
     Dates: start: 20100401
  2. NEXIUM [Suspect]
     Indication: GASTROOESOPHAGEAL REFLUX DISEASE
     Route: 048
     Dates: start: 20080101
  3. SYMBICORT [Suspect]
     Indication: CHRONIC OBSTRUCTIVE PULMONARY DISEASE
     Dosage: 160/4.5 MCG BID
     Route: 055
     Dates: start: 20080101

REACTIONS (4)
  - NEOPLASM MALIGNANT [None]
  - PNEUMONIA [None]
  - TENDONITIS [None]
  - ARTHRALGIA [None]
